FAERS Safety Report 8915846 (Version 1)
Quarter: 2012Q4

REPORT INFORMATION
  Report Type: 
  Country: SE (occurrence: SE)
  Receive Date: 20121119
  Receipt Date: 20121119
  Transmission Date: 20130627
  Serious: Yes (Hospitalization, Other)
  Sender: FDA-Public Use
  Company Number: SE-PFIZER INC-2012284660

PATIENT
  Age: 63 Year
  Sex: Female
  Weight: 58 kg

DRUGS (8)
  1. GENOTROPIN [Suspect]
     Indication: GROWTH HORMONE DEFICIENCY
     Dosage: 0.67 mg, 1x/day,7 injections/week
     Route: 058
     Dates: start: 19990316
  2. HERMOLEPSIN [Concomitant]
     Indication: CONVULSIONS
     Dosage: UNK
     Dates: start: 19740101
  3. HERMOLEPSIN [Concomitant]
     Indication: EPILEPSY
  4. HERMOLEPSIN [Concomitant]
     Indication: SEIZURE
  5. ZANTAC [Concomitant]
     Indication: GASTRIC ULCER
     Dosage: UNK
     Dates: start: 19941201
  6. CORTISONE ACETATE [Concomitant]
     Indication: ADRENAL INSUFFICIENCY
     Dosage: UNK
     Dates: start: 19931201
  7. LEVOTHYROXINE [Concomitant]
     Indication: THYROID DISORDER
     Dosage: UNK
     Dates: start: 19931201
  8. LEVOTHYROXINE [Concomitant]
     Indication: PRIMARY HYPOTHYROIDISM

REACTIONS (1)
  - Urinary tract infection [Unknown]
